FAERS Safety Report 5504515-4 (Version None)
Quarter: 2007Q4

REPORT INFORMATION
  Report Type: 
  Country: None (occurrence: None)
  Receive Date: 20071030
  Receipt Date: 20071018
  Transmission Date: 20080405
  Serious: Yes (Other)
  Sender: FDA-Public Use
  Company Number: CHNY2007NL03365

PATIENT
  Sex: Male

DRUGS (1)
  1. OTRIVIN [Suspect]
     Indication: NASAL CONGESTION
     Dosage: 1 SPRAY IN EACH NOSTRIL 2-3 TIMES/DAY, NASAL
     Route: 045
     Dates: start: 19970101

REACTIONS (5)
  - DRUG DEPENDENCE [None]
  - FATIGUE [None]
  - INSOMNIA [None]
  - REBOUND EFFECT [None]
  - YAWNING [None]
